FAERS Safety Report 4618882-7 (Version None)
Quarter: 2005Q1

REPORT INFORMATION
  Report Type: 
  Country: None (occurrence: None)
  Receive Date: 20050323
  Receipt Date: 20050317
  Transmission Date: 20050727
  Serious: Yes (Hospitalization, Other)
  Sender: FDA-Public Use
  Company Number: 2005043017

PATIENT
  Age: 63 Year
  Sex: Female
  Weight: 115.2136 kg

DRUGS (12)
  1. CADUET [Suspect]
     Indication: HYPERTENSION
     Dosage: 10 MG/20 MG DAILY, ORAL
     Route: 048
     Dates: start: 20041225
  2. NORVASC [Suspect]
     Indication: BACK PAIN
     Dosage: ORAL
     Route: 048
     Dates: start: 20030101, end: 20041201
  3. LIPITOR [Suspect]
     Indication: BLOOD CHOLESTEROL INCREASED
     Dosage: 20 MG (20 MG, 1 IN 1 D), ORAL
     Route: 048
  4. NISOLDIPINE (NISOLDIPINE) [Suspect]
     Indication: ILL-DEFINED DISORDER
     Dosage: ORAL
     Route: 048
     Dates: start: 20041201, end: 20041224
  5. HYDROCHLOROTHIAZIDE [Concomitant]
  6. ASPIRIN [Concomitant]
  7. VITAMINS (VITAMINS) [Concomitant]
  8. PROPACET (DEXTROPROPOPXYPHENE NAPSILATE, PARACETAMOL) [Concomitant]
  9. METOPROLOL TARTRATE [Concomitant]
  10. METOPROLOL TARTRATE [Concomitant]
  11. RALOXIFENE HCL [Concomitant]
  12. LANSOPRAZOLE [Concomitant]

REACTIONS (18)
  - ASTHENIA [None]
  - BLOOD PRESSURE SYSTOLIC INCREASED [None]
  - DRUG HYPERSENSITIVITY [None]
  - HAEMOGLOBIN DECREASED [None]
  - HAEMORRHOIDS [None]
  - HYPOAESTHESIA [None]
  - JOINT INJURY [None]
  - JOINT SWELLING [None]
  - LOSS OF CONSCIOUSNESS [None]
  - OEDEMA [None]
  - PALPITATIONS [None]
  - PERIPHERAL COLDNESS [None]
  - PHARMACEUTICAL PRODUCT COMPLAINT [None]
  - RECTAL HAEMORRHAGE [None]
  - ROAD TRAFFIC ACCIDENT [None]
  - SOMNOLENCE [None]
  - WEIGHT DECREASED [None]
  - WHITE BLOOD CELL COUNT DECREASED [None]
